FAERS Safety Report 7996856-6 (Version None)
Quarter: 2011Q4

REPORT INFORMATION
  Report Type: 
  Country: None (occurrence: None)
  Receive Date: 20111221
  Receipt Date: 20111219
  Transmission Date: 20120403
  Serious: Yes (Other)
  Sender: FDA-Public Use
  Company Number: US-BAYER-2011-121663

PATIENT
  Age: 63 Year
  Sex: Male

DRUGS (5)
  1. METFORMIN HCL [Concomitant]
  2. GABAPENTIN [Concomitant]
  3. COPAXONE [Concomitant]
     Indication: VISUAL IMPAIRMENT
  4. COPAXONE [Concomitant]
     Indication: HEADACHE
  5. INTERFERON BETA-1B [Suspect]
     Indication: PRIMARY PROGRESSIVE MULTIPLE SCLEROSIS
     Dosage: 2 MIU, QOD
     Route: 058
     Dates: start: 20111207

REACTIONS (8)
  - BALANCE DISORDER [None]
  - MALAISE [None]
  - FATIGUE [None]
  - HEMIPARESIS [None]
  - HEADACHE [None]
  - GAIT DISTURBANCE [None]
  - DECREASED APPETITE [None]
  - BLOOD GLUCOSE INCREASED [None]
